FAERS Safety Report 8247022-0 (Version None)
Quarter: 2012Q1

REPORT INFORMATION
  Report Type: 
  Country: None (occurrence: None)
  Receive Date: 20120330
  Receipt Date: 20120330
  Transmission Date: 20120608
  Serious: Yes (Disabling)
  Sender: FDA-Public Use
  Company Number: None

PATIENT
  Age: 72 Year
  Sex: Male
  Weight: 62 kg

DRUGS (3)
  1. CIPROFLOXACIN [Suspect]
     Indication: INFECTION
     Dosage: 400.0 MG
     Route: 041
     Dates: start: 20120328, end: 20120328
  2. SODIUM CHLORIDE [Concomitant]
     Dosage: 100 ML
     Route: 040
     Dates: start: 20120328, end: 20120328
  3. CIPROFLOXACIN [Suspect]

REACTIONS (1)
  - PRODUCT DEPOSIT [None]
